FAERS Safety Report 21354242 (Version 1)
Quarter: 2022Q3

REPORT INFORMATION
  Report Type: Spontaneous
  Country: IN (occurrence: IN)
  Receive Date: 20220920
  Receipt Date: 20220920
  Transmission Date: 20221027
  Serious: Yes (Life-Threatening, Other)
  Sender: FDA-Public Use
  Company Number: IN-drreddys-LIT/IND/22/0154601

PATIENT
  Age: 45 Year
  Sex: Female

DRUGS (2)
  1. DOCETAXEL [Suspect]
     Active Substance: DOCETAXEL
     Indication: Leiomyosarcoma
     Dosage: SECOND LINE CHEMOTHERAPY DAY 1 EVERY 3 WEEKS, FOR 6 CYCLES
  2. GEMCITABINE [Suspect]
     Active Substance: GEMCITABINE
     Indication: Leiomyosarcoma
     Dosage: ON DAYS 1 AND 8,

REACTIONS (3)
  - Neoplasm progression [Unknown]
  - Drug ineffective for unapproved indication [Unknown]
  - Haematuria [Unknown]
